FAERS Safety Report 4631435-X (Version None)
Quarter: 2005Q2

REPORT INFORMATION
  Report Type: 
  Country: None (occurrence: None)
  Receive Date: 20050407
  Receipt Date: 20050331
  Transmission Date: 20051028
  Serious: Yes (Death, Hospitalization)
  Sender: FDA-Public Use
  Company Number: 2005UW04971

PATIENT
  Age: 58 Year
  Sex: Male
  Weight: 81.1939 kg

DRUGS (14)
  1. IRESSA [Suspect]
     Indication: ADENOCARCINOMA
     Dosage: 250 MG PO
     Route: 048
     Dates: start: 20050208, end: 20050309
  2. TAXOL [Suspect]
     Dosage: 301 MG/M2 IV
     Route: 042
     Dates: start: 20041001, end: 20050118
  3. CARBOPLATIN [Suspect]
     Dosage: 503 MG IV
     Route: 042
     Dates: start: 20041001, end: 20050118
  4. ETOPOSIDE [Suspect]
     Dosage: 50 MG /100 MG
     Dates: start: 20041001, end: 20050126
  5. BROAD SPECTURM ANTIBIOTIC [Suspect]
     Indication: LUNG INFILTRATION
  6. EMPIRIC STEROIDS [Suspect]
     Indication: DYSPNOEA
  7. EMPIRIC STEROIDS [Suspect]
     Indication: INTERSTITIAL LUNG DISEASE
  8. TOPROL-XL [Concomitant]
  9. COMBIVENT [Concomitant]
  10. OXYCONTIN [Concomitant]
  11. LORTAB [Concomitant]
  12. LOVENOX [Concomitant]
  13. COUMADIN [Concomitant]
  14. VITAMIN B6 [Concomitant]

REACTIONS (11)
  - ASTHENIA [None]
  - BRONCHIOLOALVEOLAR CARCINOMA [None]
  - CARDIO-RESPIRATORY ARREST [None]
  - CRYPTOGENIC ORGANIZING PNEUMONIA [None]
  - HAEMOPTYSIS [None]
  - HEART RATE INCREASED [None]
  - HYPOXIA [None]
  - INTERSTITIAL LUNG DISEASE [None]
  - LUNG INFILTRATION [None]
  - PNEUMONITIS [None]
  - RESPIRATORY FAILURE [None]
